FAERS Safety Report 21013756 (Version 1)
Quarter: 2022Q2

REPORT INFORMATION
  Report Type: Spontaneous
  Country: US (occurrence: US)
  Receive Date: 20220627
  Receipt Date: 20220627
  Transmission Date: 20220720
  Serious: No
  Sender: FDA-Public Use
  Company Number: US-SA-SAC20220623000652

PATIENT
  Sex: Female

DRUGS (2)
  1. KEVZARA [Suspect]
     Active Substance: SARILUMAB
     Indication: Rheumatoid arthritis
     Dosage: 200 MG
  2. DUPIXENT [Concomitant]
     Active Substance: DUPILUMAB
     Dosage: 300 MG

REACTIONS (1)
  - Dermal cyst [Not Recovered/Not Resolved]
